FAERS Safety Report 8357802 (Version 3)
Quarter: 2014Q1

REPORT INFORMATION
  Report Type: Spontaneous
  Country: US (occurrence: US)
  Receive Date: 20120127
  Receipt Date: 20140127
  Transmission Date: 20141002
  Serious: Yes (Other)
  Sender: FDA-Public Use
  Company Number: US-BAYER-2012-006513

PATIENT
  Age: 36 Year
  Sex: Female
  Weight: 70.3 kg

DRUGS (8)
  1. YAZ [Suspect]
     Dosage: UNK
     Dates: start: 20090623, end: 20100108
  2. ADVIL [Concomitant]
     Dosage: UNK UNK, PRN
  3. TOPAMAX [Concomitant]
     Indication: MIGRAINE
     Dosage: 50 MG, QD
     Dates: start: 2010
  4. ZYRTEC [Concomitant]
     Indication: MULTIPLE ALLERGIES
     Dosage: OVER THE COUNTER, AS NEEDED.
  5. OXYCODONE [Concomitant]
     Dosage: 5/325 MG, 1 AS NEEDED.
  6. TYLENOL [Concomitant]
     Dosage: UNK UNK, PRN
  7. XANAX [Concomitant]
  8. PERCOCET [Concomitant]

REACTIONS (7)
  - Gallbladder disorder [None]
  - Cholecystitis chronic [None]
  - Injury [None]
  - Diarrhoea [None]
  - Weight increased [None]
  - Depression [None]
  - Anxiety [None]
